FAERS Safety Report 6708923-5 (Version None)
Quarter: 2010Q2

REPORT INFORMATION
  Report Type: 
  Country: None (occurrence: None)
  Receive Date: 20100503
  Receipt Date: 20100503
  Transmission Date: 20101027
  Serious: No
  Sender: FDA-Public Use
  Company Number: None

PATIENT
  Age: 8 Year

DRUGS (2)
  1. ABILIFY [Suspect]
     Indication: AFFECTIVE DISORDER
     Dosage: PO QHS
     Route: 048
  2. ABILIFY [Suspect]
     Indication: ANXIETY
     Dosage: PO QHS
     Route: 048

REACTIONS (1)
  - TREATMENT FAILURE [None]
